FAERS Safety Report 15670675 (Version 1)
Quarter: 2018Q4

REPORT INFORMATION
  Report Type: Spontaneous
  Country: FI (occurrence: FI)
  Receive Date: 20181129
  Receipt Date: 20181129
  Transmission Date: 20190205
  Serious: Yes (Hospitalization)
  Sender: FDA-Public Use
  Company Number: FI-B.I. PHARMACEUTICALS,INC./RIDGEFIELD-2018-BI-056952

PATIENT
  Age: 59 Year
  Sex: Male

DRUGS (6)
  1. TAMSULOSIN [Concomitant]
     Active Substance: TAMSULOSIN
     Indication: PROSTATIC DISORDER
     Route: 065
  2. BISOPROLOL [Concomitant]
     Active Substance: BISOPROLOL
     Indication: HYPERTENSION
     Route: 065
  3. LOSARTAN. [Concomitant]
     Active Substance: LOSARTAN
     Indication: HYPERTENSION
     Route: 065
  4. ATORVASTATIN [Concomitant]
     Active Substance: ATORVASTATIN
     Indication: BLOOD CHOLESTEROL
     Route: 065
  5. PRADAXA [Suspect]
     Active Substance: DABIGATRAN ETEXILATE MESYLATE
     Indication: ATRIAL FIBRILLATION
     Route: 065
  6. HYDREX SEMI [Concomitant]
     Indication: HYPERTENSION
     Route: 065

REACTIONS (12)
  - Precerebral artery occlusion [Recovered/Resolved]
  - Musculoskeletal discomfort [Recovered/Resolved]
  - Cerebral haemorrhage [Recovered/Resolved]
  - Paresis [Recovered/Resolved]
  - Dysarthria [Recovered/Resolved]
  - Unevaluable event [Recovered/Resolved]
  - Facial paralysis [Recovered/Resolved]
  - Arrhythmia [Recovered/Resolved]
  - Cerebral infarction [Recovered/Resolved]
  - Skin ulcer [Recovered/Resolved]
  - Peripheral coldness [Recovered/Resolved]
  - Neglect of personal appearance [Recovered/Resolved]

NARRATIVE: CASE EVENT DATE: 201806
